FAERS Safety Report 7886192-0 (Version None)
Quarter: 2011Q4

REPORT INFORMATION
  Report Type: 
  Country: None (occurrence: None)
  Receive Date: 20111102
  Receipt Date: 20110627
  Transmission Date: 20120403
  Serious: No
  Sender: FDA-Public Use
  Company Number: US-AMGEN-USASP2011032712

PATIENT
  Age: 67 Year
  Sex: Female

DRUGS (2)
  1. ENBREL [Suspect]
     Indication: RHEUMATOID ARTHRITIS
     Dosage: 50 MG, QWK
     Dates: start: 20110507
  2. ENBREL [Suspect]
     Indication: PSORIASIS

REACTIONS (5)
  - JOINT RANGE OF MOTION DECREASED [None]
  - GAIT DISTURBANCE [None]
  - ALOPECIA [None]
  - HYPERTENSION [None]
  - PAIN IN EXTREMITY [None]
